FAERS Safety Report 18273004 (Version 1)
Quarter: 2020Q3

REPORT INFORMATION
  Report Type: Spontaneous
  Country: FR (occurrence: FR)
  Receive Date: 20200916
  Receipt Date: 20200916
  Transmission Date: 20201103
  Serious: Yes (Other)
  Sender: FDA-Public Use
  Company Number: FR-GUERBET-FR-20200361

PATIENT
  Age: 57 Year
  Sex: Female

DRUGS (1)
  1. DOTAREM [Suspect]
     Active Substance: GADOTERATE MEGLUMINE
     Indication: MAGNETIC RESONANCE IMAGING
     Route: 065
     Dates: start: 20200717, end: 20200717

REACTIONS (4)
  - Swelling face [Unknown]
  - Dysphagia [Unknown]
  - Throat irritation [Unknown]
  - Erythema [Unknown]

NARRATIVE: CASE EVENT DATE: 20200717
